FAERS Safety Report 21983963 (Version 1)
Quarter: 2023Q1

REPORT INFORMATION
  Report Type: Spontaneous
  Country: US (occurrence: US)
  Receive Date: 20230213
  Receipt Date: 20230213
  Transmission Date: 20230418
  Serious: Yes (Hospitalization)
  Sender: FDA-Public Use
  Company Number: US-STRIDES ARCOLAB LIMITED-2022SP005346

PATIENT
  Age: 5 Month
  Sex: Female

DRUGS (15)
  1. ETOPOSIDE [Suspect]
     Active Substance: ETOPOSIDE
     Indication: Acute myeloid leukaemia
     Dosage: 3.3 MILLIGRAM/KILOGRAM PER DAY (DAILY DAYS 1 TO 5; INDUCTION 1)
     Route: 065
  2. ETOPOSIDE [Suspect]
     Active Substance: ETOPOSIDE
     Indication: Central nervous system leukaemia
     Dosage: 5 MILLIGRAM/KILOGRAM PER DAY (INTENSIFICATION I:DAILY DAYS 1 TO 5)
     Route: 065
  3. CYTARABINE [Suspect]
     Active Substance: CYTARABINE
     Indication: Acute myeloid leukaemia
     Dosage: 3.3 MILLIGRAM/KILOGRAM, EVERY 12 HRS  FROM DAY 1 TO DAY 10, INDUCTION 1
     Route: 065
  4. CYTARABINE [Suspect]
     Active Substance: CYTARABINE
     Indication: Central nervous system leukaemia
     Dosage: 20 MILLIGRAM ON DAY 1 (INDUCTION 1 AND INDUCTION 2)
     Route: 037
  5. CYTARABINE [Suspect]
     Active Substance: CYTARABINE
     Dosage: 33 MILLIGRAM/KILOGRAM, EVERY 12 HRS FROM FROM DAY 1 TO DAY 4, INDUCTION II
     Route: 065
  6. CYTARABINE [Suspect]
     Active Substance: CYTARABINE
     Dosage: 20 MILLIGRAM ON DAY 1 (INTENSIFICATION I)
     Route: 037
  7. CYTARABINE [Suspect]
     Active Substance: CYTARABINE
     Dosage: 33 MILLIGRAM/KILOGRAM, EVERY 12 HRS FROM DAY 1 TO DAY 5, INTENSIFICATION I
     Route: 037
  8. CYTARABINE [Suspect]
     Active Substance: CYTARABINE
     Dosage: 20 MILLIGRAM ON DAY 1
     Route: 037
  9. CYTARABINE [Suspect]
     Active Substance: CYTARABINE
     Dosage: UNK, TWICE WEEKLY CYTARABINE FOR 2 WEEKS, WITH CLEARANCE OF BLASTS
     Route: 037
  10. CYTARABINE [Suspect]
     Active Substance: CYTARABINE
     Dosage: UNK
     Route: 037
  11. CYTARABINE [Suspect]
     Active Substance: CYTARABINE
     Dosage: 20 MILLIGRAM EVERY 2 WEEKS FOR A TOTAL OF 12 DOSES
     Route: 037
  12. DAUNORUBICIN [Suspect]
     Active Substance: DAUNORUBICIN
     Indication: Acute myeloid leukaemia
     Dosage: 1.7 MILLIGRAM/KILOGRAM ON DAY 1 DAY 3 AND DAY 5 : INDUCTION 1
     Route: 065
  13. DAUNORUBICIN [Suspect]
     Active Substance: DAUNORUBICIN
     Indication: Central nervous system leukaemia
  14. MITOXANTRONE [Suspect]
     Active Substance: MITOXANTRONE HYDROCHLORIDE
     Indication: Acute myeloid leukaemia
     Dosage: 0.4 MILLIGRAM/KILOGRAM PER DAY FROM DAY 3 TO DAY 6 (INDUCTION II)
     Route: 065
  15. MITOXANTRONE [Suspect]
     Active Substance: MITOXANTRONE HYDROCHLORIDE
     Indication: Central nervous system leukaemia

REACTIONS (1)
  - Drug ineffective for unapproved indication [Unknown]
